FAERS Safety Report 24991879 (Version 2)
Quarter: 2025Q1

REPORT INFORMATION
  Report Type: Spontaneous
  Country: HK (occurrence: HK)
  Receive Date: 20250220
  Receipt Date: 20250307
  Transmission Date: 20250409
  Serious: Yes (Other)
  Sender: TEVA
  Company Number: HK-TEVA-VS-3298799

PATIENT
  Sex: Male

DRUGS (6)
  1. PREDNISOLONE [Suspect]
     Active Substance: PREDNISOLONE
     Indication: Nephrotic syndrome
     Route: 065
  2. TACROLIMUS [Concomitant]
     Active Substance: TACROLIMUS
     Indication: Nephrotic syndrome
  3. MYCOPHENOLATE MOFETIL [Concomitant]
     Active Substance: MYCOPHENOLATE MOFETIL
     Indication: Nephrotic syndrome
  4. CYCLOSPORINE [Concomitant]
     Active Substance: CYCLOSPORINE
     Indication: Nephrotic syndrome
  5. LEVAMISOLE [Concomitant]
     Active Substance: LEVAMISOLE
     Indication: Nephrotic syndrome
  6. CYCLOPHOSPHAMIDE [Concomitant]
     Active Substance: CYCLOPHOSPHAMIDE
     Indication: Nephrotic syndrome

REACTIONS (4)
  - Cushing^s syndrome [Unknown]
  - Steroid dependence [Unknown]
  - Short stature [Unknown]
  - Osteoporosis [Unknown]
